FAERS Safety Report 9649085 (Version 1)
Quarter: 2013Q4

REPORT INFORMATION
  Report Type: Other
  Country: TW (occurrence: TW)
  Receive Date: 20131028
  Receipt Date: 20131028
  Transmission Date: 20140711
  Serious: Yes (Other)
  Sender: FDA-Public Use
  Company Number: TW-BRISTOL-MYERS SQUIBB COMPANY-19625268

PATIENT
  Age: 54 Year
  Sex: Female

DRUGS (2)
  1. IFOSFAMIDE [Suspect]
     Indication: UTERINE CANCER
  2. PACLITAXEL [Suspect]
     Indication: UTERINE CANCER

REACTIONS (2)
  - Neutropenic sepsis [Unknown]
  - Nail disorder [Unknown]
